FAERS Safety Report 14162368 (Version 2)
Quarter: 2017Q4

REPORT INFORMATION
  Report Type: Report from Study
  Country: None (occurrence: FR)
  Receive Date: 20171106
  Receipt Date: 20171120
  Transmission Date: 20180321
  Serious: Yes (Other)
  Sender: FDA-Public Use
  Company Number: FR-ABBVIE-17K-056-2139646-00

PATIENT
  Sex: Female

DRUGS (2)
  1. METOJECT [Concomitant]
     Active Substance: METHOTREXATE SODIUM
     Indication: PRODUCT USED FOR UNKNOWN INDICATION
     Dosage: EVERY WEDNESDAY
  2. HUMIRA [Suspect]
     Active Substance: ADALIMUMAB
     Indication: RHEUMATOID ARTHRITIS
     Route: 058
     Dates: start: 20170429

REACTIONS (14)
  - Trismus [Recovered/Resolved with Sequelae]
  - Vulvovaginal dryness [Recovered/Resolved with Sequelae]
  - Myopia [Unknown]
  - Vulvovaginal mycotic infection [Unknown]
  - Arthralgia [Unknown]
  - Gait disturbance [Unknown]
  - Visual impairment [Unknown]
  - Mastication disorder [Unknown]
  - Dysphagia [Unknown]
  - Pain in extremity [Unknown]
  - Gingivitis [Recovered/Resolved with Sequelae]
  - Trismus [Recovered/Resolved with Sequelae]
  - Dysstasia [Unknown]
  - Eye discharge [Recovering/Resolving]

NARRATIVE: CASE EVENT DATE: 2017
